FAERS Safety Report 13023306 (Version 2)
Quarter: 2016Q4

REPORT INFORMATION
  Report Type: Spontaneous
  Country: US (occurrence: US)
  Receive Date: 20161213
  Receipt Date: 20161217
  Transmission Date: 20170207
  Serious: No
  Sender: FDA-Public Use
  Company Number: US-009507513-1611USA011041

PATIENT
  Age: 16 Year
  Sex: Female
  Weight: 78.01 kg

DRUGS (1)
  1. NEXPLANON [Suspect]
     Active Substance: ETONOGESTREL
     Indication: CONTRACEPTION
     Dosage: 1 SINGLE ROD
     Route: 059
     Dates: start: 20160613, end: 20161109

REACTIONS (3)
  - Implant site haemorrhage [Recovered/Resolved]
  - Device breakage [Recovered/Resolved]
  - Implant site swelling [Recovered/Resolved]

NARRATIVE: CASE EVENT DATE: 201607
